FAERS Safety Report 6418552-9 (Version None)
Quarter: 2009Q4

REPORT INFORMATION
  Report Type: 
  Country: None (occurrence: None)
  Receive Date: 20091026
  Receipt Date: 20091013
  Transmission Date: 20100525
  Serious: Yes (Other)
  Sender: FDA-Public Use
  Company Number: ADR36532009

PATIENT
  Age: 52 Year
  Sex: Female

DRUGS (8)
  1. SIMVASTATIN [Suspect]
     Indication: BLOOD CHOLESTEROL INCREASED
     Dosage: 40 MG ORAL
     Route: 048
     Dates: start: 20070705, end: 20070719
  2. AMITRIPTYLINE HCL [Concomitant]
  3. CO-DYDRAMOL [Concomitant]
  4. ESCITALOPRAM [Concomitant]
  5. GABAPENTIN [Concomitant]
  6. ALBUTEROL [Concomitant]
  7. SYMBICORT [Concomitant]
  8. TRAMADOL HCL [Concomitant]

REACTIONS (4)
  - ASTHMA [None]
  - BLOOD CREATINE PHOSPHOKINASE INCREASED [None]
  - MUSCLE SPASMS [None]
  - MYALGIA [None]
